FAERS Safety Report 13795450 (Version 1)
Quarter: 2017Q3

REPORT INFORMATION
  Report Type: Spontaneous
  Country: TR (occurrence: TR)
  Receive Date: 20170726
  Receipt Date: 20170726
  Transmission Date: 20171127
  Serious: Yes (Other)
  Sender: FDA-Public Use
  Company Number: PHHY2017TR106447

PATIENT
  Age: 32 Year
  Sex: Male

DRUGS (2)
  1. ITRACONAZOLE. [Suspect]
     Active Substance: ITRACONAZOLE
     Indication: TINEA VERSICOLOUR
     Dosage: 200 MG, BID
     Route: 065
  2. KETOCONAZOLE. [Concomitant]
     Active Substance: KETOCONAZOLE
     Indication: TINEA VERSICOLOUR
     Route: 061

REACTIONS (3)
  - Thrombocytopenia [Recovering/Resolving]
  - Petechiae [Recovered/Resolved]
  - Ecchymosis [Recovered/Resolved]
